FAERS Safety Report 16840456 (Version 8)
Quarter: 2021Q3

REPORT INFORMATION
  Report Type: Spontaneous
  Country: US (occurrence: US)
  Receive Date: 20190923
  Receipt Date: 20210727
  Transmission Date: 20211014
  Serious: Yes (Hospitalization, Other)
  Sender: FDA-Public Use
  Company Number: US-PFIZER INC-2018437450

PATIENT
  Age: 73 Year
  Sex: Female
  Weight: 87 kg

DRUGS (5)
  1. XELJANZ XR [Suspect]
     Active Substance: TOFACITINIB CITRATE
     Dosage: UNK
     Dates: start: 201803
  2. XELJANZ XR [Suspect]
     Active Substance: TOFACITINIB CITRATE
     Indication: RHEUMATOID ARTHRITIS
     Dosage: UNK, DAILY
     Dates: start: 201607
  3. XELJANZ XR [Suspect]
     Active Substance: TOFACITINIB CITRATE
     Dosage: 11 MG, 1X/DAY (AT NIGHT)
  4. XELJANZ XR [Suspect]
     Active Substance: TOFACITINIB CITRATE
     Dosage: UNK
     Dates: start: 201801
  5. XELJANZ XR [Suspect]
     Active Substance: TOFACITINIB CITRATE
     Dosage: 11 MG, DAILY
     Route: 048

REACTIONS (15)
  - Deep vein thrombosis [Recovered/Resolved]
  - Asthenia [Unknown]
  - Gastrointestinal disorder [Unknown]
  - Illness [Unknown]
  - Pulmonary thrombosis [Unknown]
  - Pulmonary embolism [Recovered/Resolved]
  - Fall [Unknown]
  - Gait disturbance [Unknown]
  - Tibia fracture [Unknown]
  - Abdominal discomfort [Unknown]
  - Balance disorder [Unknown]
  - Deafness [Unknown]
  - COVID-19 [Unknown]
  - Immune system disorder [Unknown]
  - Limb discomfort [Unknown]

NARRATIVE: CASE EVENT DATE: 2017
